FAERS Safety Report 10056827 (Version 1)
Quarter: 2014Q2

REPORT INFORMATION
  Report Type: Report from Study
  Country: NL (occurrence: NL)
  Receive Date: 20140403
  Receipt Date: 20140403
  Transmission Date: 20141212
  Serious: Yes (Hospitalization)
  Sender: FDA-Public Use
  Company Number: NL-JNJFOC-20140313880

PATIENT
  Age: 78 Year
  Sex: Male

DRUGS (23)
  1. ABIRATERONE ACETATE [Suspect]
     Indication: PROSTATE CANCER
     Route: 048
     Dates: start: 20130320, end: 20130920
  2. PREDNISOLONE [Concomitant]
     Indication: PROSTATE CANCER
     Dosage: 1 DD 2
     Route: 065
  3. PAMIDRONIC ACID [Concomitant]
     Route: 065
     Dates: start: 20130625
  4. PAMIDRONIC ACID [Concomitant]
     Route: 065
     Dates: start: 20130402
  5. PAMIDRONIC ACID [Concomitant]
     Route: 065
     Dates: start: 20130301
  6. PAMIDRONIC ACID [Concomitant]
     Route: 065
     Dates: start: 20130917
  7. PAMIDRONIC ACID [Concomitant]
     Route: 065
     Dates: start: 20130820
  8. PAMIDRONIC ACID [Concomitant]
     Route: 065
     Dates: start: 20130723
  9. PAMIDRONIC ACID [Concomitant]
     Route: 065
     Dates: start: 20130528
  10. ACETYLSALICYLZUUR CARDIO [Concomitant]
     Dosage: 1 DD 1
     Route: 065
  11. OMEPRAZOLE [Concomitant]
     Dosage: 1 DD 1
     Route: 065
  12. COLECALCIFEROL [Concomitant]
     Dosage: 1 DD 1
     Route: 065
  13. AMLODIPINE [Concomitant]
     Dosage: 1 DD 1
     Route: 065
  14. TRAMADOL [Concomitant]
     Route: 065
  15. CYPROTERONE ACETATE [Concomitant]
     Dosage: 1 DD 1
     Route: 065
  16. VALSARTAN + HYDROCHLOROTHIAZIDE [Concomitant]
     Dosage: 160/12.5 1 DD 1
     Route: 065
  17. METFORMIN [Concomitant]
     Dosage: 2 DD 1
     Route: 065
  18. EZETROL [Concomitant]
     Dosage: 1 DD 1
     Route: 065
  19. GLICLAZIDE [Concomitant]
     Dosage: 2 DD 1
     Route: 065
  20. MICONAZOLE NITRATE [Concomitant]
     Route: 065
  21. HYDROCARBONATE [Concomitant]
     Dosage: 1 X/WEEK 1
     Route: 065
  22. SERETIDE [Concomitant]
     Dosage: 25/250 MCG 2 DD 1
     Route: 065
  23. DIVISUN [Concomitant]
     Route: 065

REACTIONS (3)
  - Radicular syndrome [Unknown]
  - Metastases to bone [Unknown]
  - Delirium [Unknown]
